FAERS Safety Report 6903238-4 (Version None)
Quarter: 2010Q3

REPORT INFORMATION
  Report Type: 
  Country: None (occurrence: None)
  Receive Date: 20100803
  Receipt Date: 20080725
  Transmission Date: 20110219
  Serious: No
  Sender: FDA-Public Use
  Company Number: US-PFIZER INC-2008063553

PATIENT
  Age: 37 Year

DRUGS (6)
  1. LYRICA [Suspect]
  2. FELBAMATE [Concomitant]
  3. TOPAMAX [Concomitant]
  4. VALPROIC ACID [Concomitant]
  5. KLONOPIN [Concomitant]
  6. RISPERDAL [Concomitant]

REACTIONS (3)
  - AGGRESSION [None]
  - INCORRECT DOSE ADMINISTERED [None]
  - IRRITABILITY [None]
